FAERS Safety Report 9537514 (Version 1)
Quarter: 2013Q3

REPORT INFORMATION
  Report Type: Report from Study
  Country: BR (occurrence: BR)
  Receive Date: 20130919
  Receipt Date: 20130919
  Transmission Date: 20140515
  Serious: Yes (Death, Hospitalization, Other)
  Sender: FDA-Public Use
  Company Number: PHHY2013BR103722

PATIENT
  Age: 84 Year
  Sex: Female

DRUGS (6)
  1. FORASEQ [Suspect]
     Indication: EMPHYSEMA
     Dosage: 1 DF, BID (1 CAPSULES OF EACH TREATMENT, 2 TIMES PER DAY)
  2. MONOCORDIL [Concomitant]
     Dosage: UNK UKN, UNK
  3. MODURETIC [Concomitant]
     Dosage: UNK UKN, UNK
  4. LOSARTAN [Concomitant]
     Dosage: UNK UKN, UNK
  5. SIMVASTATIN [Concomitant]
     Dosage: UNK UKN, UNK
  6. METFORMIN [Concomitant]
     Dosage: UNK UKN, UNK

REACTIONS (9)
  - Cardio-respiratory arrest [Fatal]
  - Renal disorder [Not Recovered/Not Resolved]
  - Aphonia [Not Recovered/Not Resolved]
  - Malaise [Not Recovered/Not Resolved]
  - Venous thrombosis [Not Recovered/Not Resolved]
  - Fall [Recovering/Resolving]
  - Upper limb fracture [Recovering/Resolving]
  - Cardiovascular disorder [Not Recovered/Not Resolved]
  - Cough [Not Recovered/Not Resolved]
